FAERS Safety Report 24686386 (Version 3)
Quarter: 2025Q1

REPORT INFORMATION
  Report Type: Report from Study
  Country: GB (occurrence: GB)
  Receive Date: 20241202
  Receipt Date: 20250120
  Transmission Date: 20250408
  Serious: Yes (Other)
  Sender: NOVARTIS
  Company Number: GB-002147023-NVSC2024GB228403

PATIENT
  Age: 68 Year
  Sex: Female

DRUGS (2)
  1. MAYZENT [Suspect]
     Active Substance: SIPONIMOD
     Indication: Multiple sclerosis
     Dosage: 1 MG, QD
     Route: 048
     Dates: start: 2022
  2. MAYZENT [Suspect]
     Active Substance: SIPONIMOD
     Dosage: 2 MG, QD
     Route: 048
     Dates: start: 2022, end: 2024

REACTIONS (7)
  - Bowen^s disease [Not Recovered/Not Resolved]
  - Skin cancer [Unknown]
  - Skin lesion [Unknown]
  - Lower respiratory tract infection [Unknown]
  - Squamous cell carcinoma [Unknown]
  - Decreased immune responsiveness [Unknown]
  - Urinary tract infection [Unknown]

NARRATIVE: CASE EVENT DATE: 20240101
